FAERS Safety Report 18357328 (Version 7)
Quarter: 2021Q2

REPORT INFORMATION
  Report Type: Spontaneous
  Country: US (occurrence: US)
  Receive Date: 20201007
  Receipt Date: 20210615
  Transmission Date: 20210717
  Serious: Yes (Hospitalization, Other)
  Sender: FDA-Public Use
  Company Number: US-PFIZER INC-2020385794

PATIENT
  Age: 47 Year
  Sex: Female
  Weight: 61.22 kg

DRUGS (15)
  1. DEMEROL [Suspect]
     Active Substance: MEPERIDINE HYDROCHLORIDE
     Indication: SURGERY
     Dosage: UNK
     Dates: start: 200401
  2. TYLENOL WITH CODEINE [Suspect]
     Active Substance: ACETAMINOPHEN\CODEINE PHOSPHATE
     Indication: PAIN
     Dosage: 5 MG, 3X/DAY
     Dates: start: 2004
  3. TYLENOL WITH CODEINE [Suspect]
     Active Substance: ACETAMINOPHEN\CODEINE PHOSPHATE
     Dosage: UNK
     Dates: start: 2010
  4. DEMEROL [Suspect]
     Active Substance: MEPERIDINE HYDROCHLORIDE
     Dosage: UNK
     Dates: start: 2006
  5. OXYCODONE [Suspect]
     Active Substance: OXYCODONE
     Dosage: 410 MG, DAILY
     Dates: start: 2010
  6. DEMEROL [Suspect]
     Active Substance: MEPERIDINE HYDROCHLORIDE
     Dosage: UNK
     Dates: start: 2007
  7. FENTANYL CITRATE. [Suspect]
     Active Substance: FENTANYL CITRATE
     Indication: PAIN
     Dosage: UNK
     Dates: start: 2005
  8. DEMEROL [Suspect]
     Active Substance: MEPERIDINE HYDROCHLORIDE
     Indication: PAIN
     Dosage: UNK
     Dates: start: 200301
  9. FENTANYL CITRATE. [Suspect]
     Active Substance: FENTANYL CITRATE
     Dosage: 12.5 MG 72 HOURS
     Dates: start: 2010
  10. OXYCODONE [Suspect]
     Active Substance: OXYCODONE
     Indication: SURGERY
     Dosage: 4 X DAYS 10 MG
     Dates: start: 201001
  11. DEMEROL [Suspect]
     Active Substance: MEPERIDINE HYDROCHLORIDE
     Indication: PROCEDURAL PAIN
     Dosage: UNK, (1?2X YEAR)
     Dates: start: 2004, end: 2007
  12. OXYCODONE [Suspect]
     Active Substance: OXYCODONE
     Indication: PAIN
     Dosage: UNK
     Dates: start: 2006
  13. TYLENOL WITH CODEINE [Suspect]
     Active Substance: ACETAMINOPHEN\CODEINE PHOSPHATE
     Indication: SURGERY
     Dosage: 5 MG, 4X/DAY
     Dates: start: 200501
  14. DEMEROL [Suspect]
     Active Substance: MEPERIDINE HYDROCHLORIDE
     Dosage: UNK
     Dates: start: 2005
  15. FENTANYL CITRATE. [Suspect]
     Active Substance: FENTANYL CITRATE
     Indication: SURGERY
     Dosage: 12 MG X 3 DAYS
     Dates: start: 201001

REACTIONS (6)
  - Mental impairment [Not Recovered/Not Resolved]
  - Confusional state [Not Recovered/Not Resolved]
  - Disinhibition [Not Recovered/Not Resolved]
  - Dependence [Not Recovered/Not Resolved]
  - Cervical vertebral fracture [Unknown]
  - Spinal cord infection [Unknown]

NARRATIVE: CASE EVENT DATE: 2004
